FAERS Safety Report 23933708 (Version 2)
Quarter: 2024Q2

REPORT INFORMATION
  Report Type: Spontaneous
  Country: US (occurrence: US)
  Receive Date: 20240603
  Receipt Date: 20240605
  Transmission Date: 20240715
  Serious: Yes (Other)
  Sender: FDA-Public Use
  Company Number: US-GLENMARK PHARMACEUTICALS-2024GMK091203

PATIENT

DRUGS (5)
  1. GABAPENTIN [Interacting]
     Active Substance: GABAPENTIN
     Indication: Neuralgia
     Dosage: UNK
     Route: 065
  2. MIDODRINE [Interacting]
     Active Substance: MIDODRINE
     Indication: Hepatorenal syndrome
     Dosage: 10 MILLIGRAM, TID (Q8H)
     Route: 048
  3. ASPIRIN [Interacting]
     Active Substance: ASPIRIN
     Indication: Neuralgia
     Dosage: UNK
     Route: 065
  4. OCTREOTIDE [Interacting]
     Active Substance: OCTREOTIDE\OCTREOTIDE ACETATE
     Indication: Hepatorenal syndrome
     Dosage: 100 MICROGRAM, TID (Q8H)
     Route: 058
  5. ALBUMIN HUMAN [Interacting]
     Active Substance: ALBUMIN HUMAN
     Indication: Hepatorenal syndrome
     Dosage: 25 GRAM, BID (Q12H)
     Route: 042

REACTIONS (3)
  - Drug interaction [Recovered/Resolved]
  - Urinary retention [Unknown]
  - Nephropathy toxic [Recovered/Resolved]
